FAERS Safety Report 8363653-1 (Version None)
Quarter: 2012Q2

REPORT INFORMATION
  Report Type: 
  Country: None (occurrence: None)
  Receive Date: 20120516
  Receipt Date: 20120507
  Transmission Date: 20120825
  Serious: Yes (Other)
  Sender: FDA-Public Use
  Company Number: US-JNJFOC-20120508936

PATIENT
  Age: 40 Year
  Sex: Female
  Weight: 77.11 kg

DRUGS (3)
  1. HYDROXYZINE [Suspect]
     Indication: CYSTITIS INTERSTITIAL
     Route: 048
     Dates: start: 20120101
  2. AMITRIPTYLINE HCL [Suspect]
     Indication: CYSTITIS INTERSTITIAL
     Route: 048
     Dates: start: 20120101
  3. ELMIRON [Suspect]
     Indication: CYSTITIS INTERSTITIAL
     Route: 048
     Dates: start: 20120101

REACTIONS (2)
  - PRE-EXISTING DISEASE [None]
  - NERVE COMPRESSION [None]
